FAERS Safety Report 9681539 (Version 1)
Quarter: 2013Q4

REPORT INFORMATION
  Report Type: Spontaneous
  Country: US (occurrence: US)
  Receive Date: 20131111
  Receipt Date: 20131111
  Transmission Date: 20140711
  Serious: No
  Sender: FDA-Public Use
  Company Number: US-B.I. PHARMACEUTICALS,INC./RIDGEFIELD-2013-BI-34849BP

PATIENT
  Age: 56 Year
  Sex: Female
  Weight: 52 kg

DRUGS (6)
  1. PRADAXA [Suspect]
     Indication: ATRIAL FIBRILLATION
     Dosage: 300 MG
     Route: 048
     Dates: start: 20131015
  2. ASPIRIN [Concomitant]
     Indication: CARDIAC ASSISTANCE DEVICE USER
     Dosage: 325 MG
     Route: 048
  3. MAGNESIUM [Concomitant]
     Dosage: 800 MG
     Route: 048
  4. POTASSIUM [Concomitant]
     Dosage: 40 MEQ
     Route: 048
  5. SIMVASTATIN [Concomitant]
     Indication: BLOOD CHOLESTEROL INCREASED
     Dosage: 20 MG
     Route: 048
  6. ENALAPRIL [Concomitant]
     Indication: CARDIAC ASSISTANCE DEVICE USER
     Dosage: 5 MG
     Route: 048

REACTIONS (2)
  - Cough [Not Recovered/Not Resolved]
  - Nasopharyngitis [Not Recovered/Not Resolved]
